FAERS Safety Report 12262037 (Version 3)
Quarter: 2016Q2

REPORT INFORMATION
  Report Type: Report from Study
  Country: US (occurrence: US)
  Receive Date: 20160413
  Receipt Date: 20160503
  Transmission Date: 20160815
  Serious: No
  Sender: FDA-Public Use
  Company Number: US-AMGEN-USASL2016042921

PATIENT
  Age: 75 Year
  Sex: Male

DRUGS (1)
  1. NPLATE [Suspect]
     Active Substance: ROMIPLOSTIM
     Indication: PRODUCT USED FOR UNKNOWN INDICATION
     Dosage: UNK
     Route: 065
     Dates: start: 20160405

REACTIONS (6)
  - Asthenia [Unknown]
  - Fatigue [Unknown]
  - Pain [Unknown]
  - Headache [Unknown]
  - Hot flush [Unknown]
  - Chills [Unknown]

NARRATIVE: CASE EVENT DATE: 201604
